FAERS Safety Report 10004352 (Version 3)
Quarter: 2014Q2

REPORT INFORMATION
  Report Type: Spontaneous
  Country: US (occurrence: US)
  Receive Date: 20140312
  Receipt Date: 20140422
  Transmission Date: 20141212
  Serious: No
  Sender: FDA-Public Use
  Company Number: US-PFIZER INC-2014070725

PATIENT
  Age: 73 Year
  Sex: Male

DRUGS (1)
  1. EFFEXOR XR [Suspect]
     Dosage: 150 MG, 1X/DAY
     Route: 048

REACTIONS (1)
  - Heart rate irregular [Unknown]
